FAERS Safety Report 11036754 (Version 2)
Quarter: 2015Q2

REPORT INFORMATION
  Report Type: Report from Study
  Country: DE (occurrence: DE)
  Receive Date: 20150416
  Receipt Date: 20150506
  Transmission Date: 20150821
  Serious: Yes (Hospitalization)
  Sender: FDA-Public Use
  Company Number: DE-ABBVIE-15K-062-1375961-00

PATIENT
  Age: 16 Year
  Sex: Male
  Weight: 64.8 kg

DRUGS (3)
  1. METHOTREXATE [Suspect]
     Active Substance: METHOTREXATE
     Indication: PRODUCT USED FOR UNKNOWN INDICATION
     Route: 065
     Dates: start: 20101215
  2. HUMIRA [Suspect]
     Active Substance: ADALIMUMAB
     Indication: JUVENILE IDIOPATHIC ARTHRITIS
     Route: 058
     Dates: start: 20120109
  3. FOLIC ACID. [Concomitant]
     Active Substance: FOLIC ACID
     Indication: PRODUCT USED FOR UNKNOWN INDICATION
     Dates: start: 20101215

REACTIONS (2)
  - Accident [Unknown]
  - Thermal burn [Recovered/Resolved]

NARRATIVE: CASE EVENT DATE: 20140622
